FAERS Safety Report 5198065-5 (Version None)
Quarter: 2007Q1

REPORT INFORMATION
  Report Type: 
  Country: None (occurrence: None)
  Receive Date: 20070104
  Receipt Date: 20061228
  Transmission Date: 20070707
  Serious: Yes (Hospitalization)
  Sender: FDA-Public Use
  Company Number: JP-JNJFOC-20061002810

PATIENT
  Age: 66 Year
  Sex: Female

DRUGS (2)
  1. REMICADE [Suspect]
     Route: 042
  2. REMICADE [Suspect]
     Indication: RHEUMATOID ARTHRITIS
     Dosage: 3 INFUSIONS ON UNSPECIFIED DATES
     Route: 042

REACTIONS (4)
  - BACTERIAL INFECTION [None]
  - DISSEMINATED TUBERCULOSIS [None]
  - PNEUMOCYSTIS JIROVECI INFECTION [None]
  - SPUTUM CULTURE POSITIVE [None]
